FAERS Safety Report 8479344 (Version 6)
Quarter: 2013Q3

REPORT INFORMATION
  Report Type: Spontaneous
  Country: DK (occurrence: DK)
  Receive Date: 20120328
  Receipt Date: 20130813
  Transmission Date: 20140515
  Serious: Yes (Death, Hospitalization, Disabling, Other)
  Sender: FDA-Public Use
  Company Number: DK-AMGEN-DNKSP2012018066

PATIENT
  Age: 15 Year
  Sex: Female
  Weight: 34 kg

DRUGS (7)
  1. ENBREL [Suspect]
     Indication: JUVENILE IDIOPATHIC ARTHRITIS
     Dosage: 50 MG, WEEKLY
     Route: 058
     Dates: start: 20101210, end: 20120206
  2. METHOTREXAT /00113801/ [Suspect]
     Indication: JUVENILE IDIOPATHIC ARTHRITIS
     Dosage: 10-15 MG/M2 WEEKLY
     Route: 048
     Dates: start: 20101020, end: 20111213
  3. METHOTREXAT /00113801/ [Suspect]
     Indication: INTERSTITIAL LUNG DISEASE
     Dosage: UNK
     Route: 065
  4. PREDNISONE [Suspect]
     Indication: JUVENILE IDIOPATHIC ARTHRITIS
     Dosage: UNK
     Route: 065
     Dates: start: 20101020, end: 201103
  5. SENDOXAN [Suspect]
     Indication: INTERSTITIAL LUNG DISEASE
     Dosage: UNK
     Route: 065
     Dates: start: 20120306
  6. IRON [Concomitant]
     Indication: PRODUCT USED FOR UNKNOWN INDICATION
     Dosage: UNK
     Route: 065
  7. VITAMIN D                          /00107901/ [Concomitant]
     Indication: PRODUCT USED FOR UNKNOWN INDICATION
     Dosage: UNK
     Route: 065

REACTIONS (12)
  - Nutritional condition abnormal [Unknown]
  - Pneumothorax [Unknown]
  - Dyspnoea exertional [Not Recovered/Not Resolved]
  - C-reactive protein increased [Unknown]
  - Resuscitation [Not Recovered/Not Resolved]
  - Endotracheal intubation [Unknown]
  - Cardiac arrest [Fatal]
  - Superinfection [Fatal]
  - Septic shock [Fatal]
  - Interstitial lung disease [Not Recovered/Not Resolved]
  - Atypical pneumonia [Unknown]
  - Pneumonia [Unknown]
